FAERS Safety Report 9994393 (Version 1)
Quarter: 2014Q1

REPORT INFORMATION
  Report Type: Spontaneous
  Country: BR (occurrence: BR)
  Receive Date: 20140311
  Receipt Date: 20140311
  Transmission Date: 20141002
  Serious: Yes (Death, Hospitalization)
  Sender: FDA-Public Use
  Company Number: BR-BIOGENIDEC-2014BI020496

PATIENT
  Sex: Male

DRUGS (3)
  1. AVONEX [Suspect]
     Indication: MULTIPLE SCLEROSIS
     Route: 030
     Dates: start: 20070830, end: 20120825
  2. AVONEX [Suspect]
     Indication: MULTIPLE SCLEROSIS
     Route: 030
     Dates: start: 20120902, end: 20140130
  3. NIMESULIDE [Concomitant]

REACTIONS (15)
  - Sepsis [Fatal]
  - Pneumonia [Fatal]
  - Multiple sclerosis [Fatal]
  - Loss of consciousness [Recovered/Resolved]
  - Cerebrovascular accident [Unknown]
  - Vision blurred [Unknown]
  - Cyanosis [Unknown]
  - VIIth nerve paralysis [Unknown]
  - Speech disorder [Unknown]
  - Hypertension [Unknown]
  - Balance disorder [Not Recovered/Not Resolved]
  - Constipation [Unknown]
  - Dysphagia [Unknown]
  - Decreased appetite [Not Recovered/Not Resolved]
  - Insomnia [Unknown]
